FAERS Safety Report 20724653 (Version 1)
Quarter: 2022Q2

REPORT INFORMATION
  Report Type: Other
  Country: US (occurrence: US)
  Receive Date: 20220419
  Receipt Date: 20220419
  Transmission Date: 20220721
  Serious: Yes (Hospitalization, Other)
  Sender: FDA-Public Use
  Company Number: US-Covis Pharma GmbH-2022COV01145

PATIENT
  Age: 33 Year
  Sex: Female
  Weight: 124.85 kg

DRUGS (1)
  1. MAKENA [Suspect]
     Active Substance: HYDROXYPROGESTERONE CAPROATE
     Indication: Premature delivery
     Route: 058
     Dates: end: 20220406

REACTIONS (1)
  - Preterm premature rupture of membranes [Not Recovered/Not Resolved]

NARRATIVE: CASE EVENT DATE: 20220406
